FAERS Safety Report 16318432 (Version 4)
Quarter: 2021Q2

REPORT INFORMATION
  Report Type: Spontaneous
  Country: DE (occurrence: DE)
  Receive Date: 20190516
  Receipt Date: 20210507
  Transmission Date: 20210716
  Serious: Yes (Death, Life-Threatening, Hospitalization, Other)
  Sender: FDA-Public Use
  Company Number: DE-AUROBINDO-AUR-APL-2019-028589

PATIENT
  Age: 79 Year
  Sex: Female
  Weight: 72 kg

DRUGS (88)
  1. VALSARTAN FILM?COATED TABLET [Suspect]
     Active Substance: VALSARTAN
     Dosage: UNK UNK, ONCE A DAY (320 OR 160 MG BID)
     Route: 065
     Dates: start: 201708
  2. VALSARTAN FILM?COATED TABLET [Suspect]
     Active Substance: VALSARTAN
     Dosage: UNK
     Route: 065
     Dates: start: 20180702
  3. VALSARTAN MYLAN [Suspect]
     Active Substance: VALSARTAN
     Indication: HYPERTENSION
     Dosage: UNK
     Route: 065
     Dates: start: 20130204
  4. VALSARTAN MYLAN [Suspect]
     Active Substance: VALSARTAN
     Dosage: 2 X 80 MG
     Route: 065
  5. VALSARTAN MYLAN [Suspect]
     Active Substance: VALSARTAN
     Dosage: 160 MILLIGRAM, TWO TIMES A DAY
     Route: 065
     Dates: start: 201402, end: 201708
  6. AMLODIPIN (BESILAT) DEXCEL [Concomitant]
     Active Substance: AMLODIPINE BESYLATE
     Indication: PRODUCT USED FOR UNKNOWN INDICATION
     Dosage: UNK
     Route: 065
     Dates: start: 2013, end: 2017
  7. HCT [Concomitant]
     Active Substance: HYDROCHLOROTHIAZIDE
     Indication: PRODUCT USED FOR UNKNOWN INDICATION
     Dosage: UNK, 1/2?0?0 (AT HOSPITAL DISCHARGE)
     Route: 065
     Dates: start: 20181206
  8. MACROGOL [Concomitant]
     Active Substance: POLYETHYLENE GLYCOLS
     Indication: PRODUCT USED FOR UNKNOWN INDICATION
     Dosage: UNK
     Route: 065
     Dates: start: 20190214
  9. MOMETASONFUROAAT GLENMARK [Concomitant]
     Indication: PRODUCT USED FOR UNKNOWN INDICATION
     Dosage: UNK
     Route: 065
     Dates: start: 2015
  10. MOVICOL [Concomitant]
     Active Substance: POLYETHYLENE GLYCOL 3350\POTASSIUM CHLORIDE\SODIUM BICARBONATE\SODIUM CHLORIDE
     Indication: PRODUCT USED FOR UNKNOWN INDICATION
     Dosage: UNK UNK, BID
     Route: 065
  11. PANTOZOL [Concomitant]
     Active Substance: PANTOPRAZOLE SODIUM
     Indication: PRODUCT USED FOR UNKNOWN INDICATION
     Dosage: UNK, ONCE A DAY, 1?0?0 (AT HOSPITAL DISCHARGE)
     Route: 065
     Dates: start: 20181206
  12. VALSARTAN FILM?COATED TABLET [Suspect]
     Active Substance: VALSARTAN
     Dosage: UNK (160 IN MORNING AND 80 MG IN EVENING)
     Route: 065
  13. VALSARTAN FILM?COATED TABLET [Suspect]
     Active Substance: VALSARTAN
     Dosage: UNK UNK, ONCE A DAY (320 OR 160 MG BID)
     Route: 065
     Dates: start: 201312
  14. VALSARTAN FILM?COATED TABLET [Suspect]
     Active Substance: VALSARTAN
     Dosage: UNK
     Route: 065
     Dates: start: 20181126
  15. DIOVAN [Suspect]
     Active Substance: VALSARTAN
     Dosage: 160 MILLIGRAM, ONCE A DAY (160MG IN MORNING AND 160 IN EVENING)
     Route: 065
  16. DIOVAN [Suspect]
     Active Substance: VALSARTAN
     Dosage: UNK (NOVARTIS AG)
     Route: 065
  17. VALSARTAN HEXAL [Suspect]
     Active Substance: VALSARTAN
     Indication: HYPERTENSION
     Dosage: UNK
     Route: 065
     Dates: start: 2013
  18. EUTHYROX [Concomitant]
     Active Substance: LEVOTHYROXINE SODIUM
     Indication: PRODUCT USED FOR UNKNOWN INDICATION
     Dosage: UNK, ONCE A DAY (MORNING)
     Route: 065
  19. FUROSEMID [Concomitant]
     Active Substance: FUROSEMIDE
     Indication: PRODUCT USED FOR UNKNOWN INDICATION
     Dosage: 40 MILLIGRAM, TWO TIMES A DAY
     Route: 065
     Dates: start: 201903
  20. HALOPERIDOL NEURAXPHARM [Concomitant]
     Active Substance: HALOPERIDOL
     Indication: PRODUCT USED FOR UNKNOWN INDICATION
     Dosage: 30 MILLILITER
     Route: 065
     Dates: start: 201902
  21. VALSARTAN FILM?COATED TABLET [Suspect]
     Active Substance: VALSARTAN
     Dosage: UNK
     Route: 065
     Dates: start: 20170907
  22. VALSARTAN FILM?COATED TABLET [Suspect]
     Active Substance: VALSARTAN
     Dosage: UNK
     Route: 065
     Dates: start: 20170505
  23. VALSARTAN MYLAN [Suspect]
     Active Substance: VALSARTAN
     Dosage: 320 MILLIGRAM, TWO TIMES A DAY
     Route: 065
     Dates: start: 2005
  24. CLEXANE [Concomitant]
     Active Substance: ENOXAPARIN SODIUM
     Indication: PRODUCT USED FOR UNKNOWN INDICATION
     Dosage: UNK
     Route: 065
     Dates: start: 2011
  25. DIGIMERCK [Concomitant]
     Active Substance: DIGITOXIN
     Indication: PRODUCT USED FOR UNKNOWN INDICATION
     Dosage: UNK, MINOR 0.07
     Route: 065
     Dates: start: 20190117
  26. LEVOTHYROXINE. [Concomitant]
     Active Substance: LEVOTHYROXINE
     Dosage: UNK, QD 1?0?0 (AT HOSPITAL DISCHARGE)
     Route: 065
     Dates: start: 20180505
  27. MACROGOL 3350;POTASSIUM CHLORIDE;SODIUM BICARBONATE;SODIUM CHLORIDE [Concomitant]
     Active Substance: POLYETHYLENE GLYCOL 3350\POTASSIUM CHLORIDE\SODIUM BICARBONATE\SODIUM CHLORIDE
     Indication: PRODUCT USED FOR UNKNOWN INDICATION
     Dosage: UNK
     Route: 065
     Dates: start: 201902
  28. TAVOR EXPIDET [Concomitant]
     Active Substance: LORAZEPAM
     Indication: PRODUCT USED FOR UNKNOWN INDICATION
     Dosage: UNK
     Route: 065
     Dates: start: 20190218
  29. VALSARTAN FILM?COATED TABLET [Suspect]
     Active Substance: VALSARTAN
     Dosage: 80 MILLIGRAM, TWO TIMES A DAY ((80 MG IN MORNING AND 80 MG IN EVENING)
     Route: 065
     Dates: start: 2010
  30. VALSARTAN FILM?COATED TABLET [Suspect]
     Active Substance: VALSARTAN
     Dosage: UNK
     Route: 065
     Dates: start: 20170206
  31. AMLODIPIN 1 A PHARMA [Suspect]
     Active Substance: AMLODIPINE BESYLATE
     Indication: HYPERTENSION
     Dosage: 5 MILLIGRAM
     Route: 065
     Dates: start: 2013, end: 2018
  32. AMLODIPIN [Concomitant]
     Active Substance: AMLODIPINE BESYLATE
     Indication: PRODUCT USED FOR UNKNOWN INDICATION
     Dosage: UNK UNK, ONCE A DAY (BID 1?0?1 (AT HOSPITAL DISCHARGE)
     Route: 065
     Dates: start: 20180505
  33. AMLODIPIN [Concomitant]
     Active Substance: AMLODIPINE BESYLATE
     Dosage: UNK UNK, ONCE A DAY (1?0?1 (AT HOSPITAL DISCHARGE)
     Route: 065
     Dates: start: 20181206
  34. BISOPROLOL COMP [Concomitant]
     Active Substance: BISOPROLOL FUMARATE\HYDROCHLOROTHIAZIDE
     Indication: PRODUCT USED FOR UNKNOWN INDICATION
     Dosage: UNK
     Route: 065
     Dates: start: 2014, end: 2017
  35. EYLEA [Concomitant]
     Active Substance: AFLIBERCEPT
     Indication: PRODUCT USED FOR UNKNOWN INDICATION
     Dosage: UNK
     Route: 065
     Dates: start: 2014
  36. FENTANYL CT [Concomitant]
     Indication: PRODUCT USED FOR UNKNOWN INDICATION
     Dosage: 12 MICROGRAM/HOUR
     Route: 065
     Dates: start: 201903
  37. HYDROMORPHONE [Concomitant]
     Active Substance: HYDROMORPHONE
     Indication: PRODUCT USED FOR UNKNOWN INDICATION
     Dosage: 2 MILLIGRAM
     Route: 065
     Dates: start: 20190214
  38. INFECTOTRIMET [Concomitant]
     Indication: PRODUCT USED FOR UNKNOWN INDICATION
     Dosage: UNK
     Route: 065
     Dates: start: 2015
  39. IBUPROFEN AL [Concomitant]
     Active Substance: IBUPROFEN
     Indication: PRODUCT USED FOR UNKNOWN INDICATION
     Dosage: UNK
     Route: 065
     Dates: start: 2011
  40. MOMETASONFUROAAT GLENMARK [Concomitant]
     Dosage: UNK
     Route: 065
     Dates: start: 2018
  41. PANTOPRAZOL AL [Concomitant]
     Active Substance: PANTOPRAZOLE SODIUM
     Indication: PRODUCT USED FOR UNKNOWN INDICATION
     Dosage: UNK
     Route: 065
     Dates: start: 20110728
  42. PENICILLIN V AL [Concomitant]
     Indication: PRODUCT USED FOR UNKNOWN INDICATION
     Dosage: UNK
     Route: 065
     Dates: start: 2015
  43. TAVOR [Concomitant]
     Indication: PRODUCT USED FOR UNKNOWN INDICATION
     Dosage: UNK, 1.0 OT
     Route: 065
     Dates: start: 201902
  44. VALSARTAN FILM?COATED TABLET [Suspect]
     Active Substance: VALSARTAN
     Dosage: UNK UNK, ONCE A DAY (320 OR 160 MG BID)
     Route: 065
     Dates: start: 20131213
  45. VALSARTAN FILM?COATED TABLET [Suspect]
     Active Substance: VALSARTAN
     Dosage: UNK
     Route: 065
     Dates: start: 20180313
  46. L?THYROX HEXAL [Suspect]
     Active Substance: LEVOTHYROXINE SODIUM
     Indication: PRODUCT USED FOR UNKNOWN INDICATION
     Dosage: UNK
     Route: 065
     Dates: start: 2014
  47. PREDNISOLONE. [Suspect]
     Active Substance: PREDNISOLONE
     Indication: PRODUCT USED FOR UNKNOWN INDICATION
     Dosage: UNK
     Route: 065
  48. VALSARTAN HEXAL [Suspect]
     Active Substance: VALSARTAN
     Dosage: 160 MILLIGRAM
     Route: 065
  49. ADVANTAN [Concomitant]
     Active Substance: METHYLPREDNISOLONE ACEPONATE
     Indication: PRODUCT USED FOR UNKNOWN INDICATION
     Dosage: UNK
     Route: 065
     Dates: start: 2018
  50. CORTISONE [Concomitant]
     Active Substance: CORTISONE
     Indication: ERYTHEMA
     Dosage: UNK
     Route: 065
     Dates: start: 20151013, end: 20151013
  51. DIGIMERCK MINOR [Concomitant]
     Active Substance: DIGITOXIN
     Indication: PRODUCT USED FOR UNKNOWN INDICATION
     Dosage: UNK
     Route: 065
  52. ECURAL [Concomitant]
     Active Substance: MOMETASONE
     Indication: PRODUCT USED FOR UNKNOWN INDICATION
     Dosage: UNK
     Route: 065
  53. ELIQUIS [Concomitant]
     Active Substance: APIXABAN
     Indication: PRODUCT USED FOR UNKNOWN INDICATION
     Dosage: UNK
     Route: 065
     Dates: start: 20181220
  54. PANTOPRAZOLE [Concomitant]
     Active Substance: PANTOPRAZOLE
     Indication: PRODUCT USED FOR UNKNOWN INDICATION
     Dosage: 40 MILLIGRAM
     Route: 065
     Dates: start: 201901
  55. VALSARTAN. [Concomitant]
     Active Substance: VALSARTAN
     Indication: PRODUCT USED FOR UNKNOWN INDICATION
     Dosage: UNK, ONCE A DAY, 1?0?1 (AT HOSPITAL DISCHARGE)
     Route: 065
     Dates: start: 20181206
  56. VALSARTAN. [Concomitant]
     Active Substance: VALSARTAN
     Dosage: UNK, ONCE A DAY, BID 1?0?1 (AT HOSPITAL DISCHARGE)
     Route: 065
     Dates: start: 20180505
  57. VALSARTAN FILM?COATED TABLET [Suspect]
     Active Substance: VALSARTAN
     Dosage: UNK
     Route: 065
     Dates: start: 20171122
  58. VALSARTAN FILM?COATED TABLET [Suspect]
     Active Substance: VALSARTAN
     Dosage: UNK
     Route: 065
     Dates: start: 20170628
  59. ACTRAPHANE [Concomitant]
     Active Substance: INSULIN HUMAN
     Indication: PRODUCT USED FOR UNKNOWN INDICATION
     Dosage: UNK, 30 INNOLET FER 5 X3 ML
     Route: 065
     Dates: start: 20190104
  60. ACTRAPID [Concomitant]
     Active Substance: INSULIN HUMAN
     Indication: PRODUCT USED FOR UNKNOWN INDICATION
     Dosage: UNK, ACCORDING TO SCHEME (AT HOSPITAL DISCHARGE)
     Route: 065
     Dates: start: 20181206
  61. ASPIRIN. [Concomitant]
     Active Substance: ASPIRIN
     Indication: TRANSIENT ISCHAEMIC ATTACK
     Dosage: UNK
     Route: 065
  62. BISOPROLOL [Concomitant]
     Active Substance: BISOPROLOL
     Indication: PRODUCT USED FOR UNKNOWN INDICATION
     Dosage: UNK, 1/2?0?0 (AT HOSPITAL DISCHARGE)
     Route: 065
     Dates: start: 20181206
  63. CORTISONE [Concomitant]
     Active Substance: CORTISONE
     Dosage: UNK
     Route: 065
     Dates: start: 20151009, end: 20151009
  64. DEXAGENT OPHTAL [Concomitant]
     Active Substance: DEXAMETHASONE\GENTAMICIN SULFATE
     Indication: PRODUCT USED FOR UNKNOWN INDICATION
     Dosage: UNK
     Route: 065
     Dates: start: 2014
  65. FERRO?SANOL DUODENAL [Concomitant]
     Active Substance: FERROUS GLYCINE SULFATE
     Indication: PRODUCT USED FOR UNKNOWN INDICATION
     Dosage: UNK
     Route: 065
     Dates: start: 2011
  66. HALOPERIDOL. [Concomitant]
     Active Substance: HALOPERIDOL
     Indication: PRODUCT USED FOR UNKNOWN INDICATION
     Dosage: UNK
     Route: 065
     Dates: start: 20190214
  67. LEVOTHYROXINE. [Concomitant]
     Active Substance: LEVOTHYROXINE
     Indication: PRODUCT USED FOR UNKNOWN INDICATION
     Dosage: UNK, QD 1?0?0 (AT HOSPITAL DISCHARGE)
     Route: 065
     Dates: start: 20181206
  68. NOVAMINSULFON [Concomitant]
     Active Substance: METAMIZOLE
     Indication: PRODUCT USED FOR UNKNOWN INDICATION
     Dosage: UNK
     Route: 065
     Dates: start: 2011
  69. AMLODIPINE [Suspect]
     Active Substance: AMLODIPINE BESYLATE
     Indication: HYPERTENSION
     Dosage: UNK
     Route: 065
     Dates: start: 2016, end: 2017
  70. BISOPROLOL PLUS [Suspect]
     Active Substance: BISOPROLOL FUMARATE\HYDROCHLOROTHIAZIDE
     Indication: PRODUCT USED FOR UNKNOWN INDICATION
     Dosage: UNK
     Route: 065
     Dates: start: 2014, end: 2018
  71. DIOVAN [Suspect]
     Active Substance: VALSARTAN
     Indication: HYPERTENSION
     Dosage: UNK, 80 OT, UNK
     Route: 065
     Dates: start: 2011, end: 2013
  72. VALSARTAN MYLAN [Suspect]
     Active Substance: VALSARTAN
     Dosage: 160 MILLIGRAM, TWO TIMES A DAY
     Route: 065
     Dates: start: 201403, end: 201708
  73. BISOPROLOL [Concomitant]
     Active Substance: BISOPROLOL
     Dosage: UNK, 1/2?0?0 AT HOSPITAL DISCHARGE (10/25)
     Route: 065
     Dates: start: 20180505
  74. BISOPROLOL DURA PLUS [Concomitant]
     Indication: PRODUCT USED FOR UNKNOWN INDICATION
     Dosage: UNK
     Route: 065
  75. DEXAMETHASONE. [Concomitant]
     Active Substance: DEXAMETHASONE
     Indication: PRODUCT USED FOR UNKNOWN INDICATION
     Dosage: UNK, TID 1?1?1 (AT HOSPITAL DISCHARGE)
     Route: 065
     Dates: start: 20181206
  76. HYDROXYZINE HYDROCHLORIDE. [Concomitant]
     Active Substance: HYDROXYZINE HYDROCHLORIDE
     Indication: PRODUCT USED FOR UNKNOWN INDICATION
     Dosage: UNK
     Route: 065
     Dates: start: 20190214
  77. L?THYROXIN ARISTO [Concomitant]
     Active Substance: LEVOTHYROXINE SODIUM
     Indication: PRODUCT USED FOR UNKNOWN INDICATION
     Dosage: UNK
     Route: 065
     Dates: start: 2013
  78. VALSARTAN FILM?COATED TABLET [Suspect]
     Active Substance: VALSARTAN
     Indication: HYPERTENSION
     Dosage: 320 MILLIGRAM, ONCE A DAY, 160 MG, BID
     Route: 065
     Dates: start: 2005
  79. DIOVAN [Suspect]
     Active Substance: VALSARTAN
     Dosage: 160 MILLIGRAM
     Route: 065
     Dates: start: 2013, end: 2013
  80. VALSARTAN 1A PHARMA [Suspect]
     Active Substance: VALSARTAN
     Indication: HYPERTENSION
     Dosage: 160 MILLIGRAM, ONCE A DAY
     Route: 048
     Dates: start: 2013, end: 2017
  81. VALSARTAN DURA [Suspect]
     Active Substance: VALSARTAN
     Indication: HYPERTENSION
     Dosage: UNK
     Route: 065
     Dates: start: 2017, end: 2018
  82. VALSARTAN MYLAN [Suspect]
     Active Substance: VALSARTAN
     Dosage: 160 MILLIGRAM, TWO TIMES A DAY
     Route: 065
     Dates: start: 201702, end: 201807
  83. VALSARTAN MYLAN [Suspect]
     Active Substance: VALSARTAN
     Dosage: 160 MILLIGRAM, TWO TIMES A DAY
     Route: 065
     Dates: start: 201310, end: 201708
  84. CLEXANE [Concomitant]
     Active Substance: ENOXAPARIN SODIUM
     Indication: PRODUCT USED FOR UNKNOWN INDICATION
     Dosage: UNK
     Route: 065
  85. L?THYROXIN [Concomitant]
     Active Substance: LEVOTHYROXINE SODIUM
     Indication: PRODUCT USED FOR UNKNOWN INDICATION
     Dosage: UNK
     Route: 065
     Dates: start: 2011, end: 2018
  86. MIDAZOLAM. [Concomitant]
     Active Substance: MIDAZOLAM
     Indication: PRODUCT USED FOR UNKNOWN INDICATION
     Dosage: 5 MILLIGRAM/MILLILITRE
     Route: 065
     Dates: start: 201903
  87. PARACETAMOL [Concomitant]
     Active Substance: ACETAMINOPHEN
     Indication: PRODUCT USED FOR UNKNOWN INDICATION
     Dosage: UNK
     Route: 065
  88. PANTOPRAZOL TAD [Concomitant]
     Active Substance: PANTOPRAZOLE SODIUM
     Indication: PRODUCT USED FOR UNKNOWN INDICATION
     Dosage: UNK
     Route: 065
     Dates: start: 2015

REACTIONS (92)
  - Drug intolerance [Unknown]
  - Blood glucose increased [Unknown]
  - Postoperative renal failure [Unknown]
  - Disturbance in attention [Unknown]
  - Varicose vein [Unknown]
  - Peripheral swelling [Unknown]
  - Dyspnoea [Unknown]
  - Weight increased [Recovering/Resolving]
  - Urinary tract infection [Unknown]
  - Large intestine polyp [Unknown]
  - Diarrhoea [Unknown]
  - Haemorrhoids [Unknown]
  - Left ventricular hypertrophy [Unknown]
  - Pruritus [Unknown]
  - Loss of personal independence in daily activities [Unknown]
  - Drug ineffective [Unknown]
  - Death [Fatal]
  - Chronic kidney disease [Unknown]
  - Metastases to lung [Not Recovered/Not Resolved]
  - General physical health deterioration [Unknown]
  - Cognitive disorder [Unknown]
  - Left ventricular failure [Unknown]
  - Adenoma benign [Unknown]
  - Fatigue [Unknown]
  - Dermatosis [Unknown]
  - Restlessness [Unknown]
  - Dizziness [Unknown]
  - Productive cough [Unknown]
  - Insomnia [Unknown]
  - Colon adenoma [Unknown]
  - Inflammatory marker increased [Unknown]
  - Osteoarthritis [Unknown]
  - Bradycardia [Unknown]
  - Basal cell carcinoma [Unknown]
  - Visual impairment [Unknown]
  - Right ventricular failure [Unknown]
  - Erythema [Unknown]
  - Swelling [Unknown]
  - Ventricular hypertrophy [Unknown]
  - Nocturia [Unknown]
  - External ear disorder [Unknown]
  - Aortic dilatation [Unknown]
  - Tinnitus [Unknown]
  - Tachycardia [Unknown]
  - Abdominal pain [Unknown]
  - Anaemia [Unknown]
  - Bladder disorder [Unknown]
  - Renal cyst [Unknown]
  - Renal cell carcinoma [Fatal]
  - Vomiting [Unknown]
  - Urinary retention [Unknown]
  - Cardiac failure [Unknown]
  - Erysipelas [Unknown]
  - Cataract [Unknown]
  - Pustule [Unknown]
  - Meniscal degeneration [Unknown]
  - Gastroenteritis [Unknown]
  - Hypoaesthesia [Unknown]
  - Hypertension [Unknown]
  - Brain neoplasm [Unknown]
  - Brain oedema [Unknown]
  - Metastases to central nervous system [Unknown]
  - Blood pressure increased [Unknown]
  - Pain in extremity [Unknown]
  - Defaecation disorder [Unknown]
  - Fibroma [Unknown]
  - Fall [Unknown]
  - Oedema peripheral [Recovering/Resolving]
  - Colitis [Unknown]
  - Arthralgia [Recovering/Resolving]
  - Aphthous ulcer [Unknown]
  - Cerumen impaction [Unknown]
  - Melanocytic naevus [Unknown]
  - Large intestine infection [Unknown]
  - Hypotension [Unknown]
  - Cholelithiasis [Unknown]
  - Functional gastrointestinal disorder [Unknown]
  - Clear cell renal cell carcinoma [Not Recovered/Not Resolved]
  - Asthenia [Unknown]
  - Hypothyroidism [Unknown]
  - Steroid diabetes [Unknown]
  - Rash [Unknown]
  - Ischaemia [Unknown]
  - Renal neoplasm [Unknown]
  - Personality change [Unknown]
  - Gait disturbance [Unknown]
  - Dyspnoea exertional [Unknown]
  - Atrial fibrillation [Unknown]
  - Dysuria [Unknown]
  - Ventricular extrasystoles [Unknown]
  - Tendon rupture [Unknown]
  - Joint swelling [Unknown]

NARRATIVE: CASE EVENT DATE: 2008
